FAERS Safety Report 17846075 (Version 1)
Quarter: 2020Q2

REPORT INFORMATION
  Report Type: Spontaneous
  Country: US (occurrence: US)
  Receive Date: 20200531
  Receipt Date: 20200531
  Transmission Date: 20200714
  Serious: Yes (Life-Threatening)
  Sender: FDA-Public Use
  Company Number: None

PATIENT
  Age: 50 Year
  Sex: Female
  Weight: 61.2 kg

DRUGS (1)
  1. ISOTRETINOIN. [Suspect]
     Active Substance: ISOTRETINOIN
     Dates: start: 20190407, end: 20191013

REACTIONS (5)
  - Headache [None]
  - Eye irritation [None]
  - Vertigo [None]
  - Hallucination, tactile [None]
  - Hallucination, auditory [None]

NARRATIVE: CASE EVENT DATE: 20191014
